FAERS Safety Report 13304706 (Version 1)
Quarter: 2017Q1

REPORT INFORMATION
  Report Type: Spontaneous
  Country: MX (occurrence: MX)
  Receive Date: 20170308
  Receipt Date: 20170308
  Transmission Date: 20170428
  Serious: Yes (Hospitalization)
  Sender: FDA-Public Use
  Company Number: PHHY2017MX019475

PATIENT
  Age: 88 Year
  Sex: Female

DRUGS (5)
  1. CEFTRIAXONE. [Suspect]
     Active Substance: CEFTRIAXONE
     Indication: POLLAKIURIA
  2. CEFTRIAXONE. [Suspect]
     Active Substance: CEFTRIAXONE
     Indication: RESPIRATORY TRACT INFECTION
     Dosage: 1 G, QW
     Route: 030
  3. AMIKACIN [Concomitant]
     Active Substance: AMIKACIN
     Indication: POLLAKIURIA
  4. AMIKACIN [Concomitant]
     Active Substance: AMIKACIN
     Indication: RESPIRATORY TRACT INFECTION
     Dosage: 500 MG, QD
     Route: 030
  5. LEVOFLOXACIN. [Concomitant]
     Active Substance: LEVOFLOXACIN
     Indication: RESPIRATORY TRACT INFECTION
     Dosage: 750 MG, QD
     Route: 042

REACTIONS (2)
  - Anaphylactic shock [Recovered/Resolved]
  - Cardiac failure [Unknown]
